FAERS Safety Report 11540063 (Version 2)
Quarter: 2015Q4

REPORT INFORMATION
  Report Type: Spontaneous
  Country: BR (occurrence: BR)
  Receive Date: 20150923
  Receipt Date: 20151106
  Transmission Date: 20160304
  Serious: Yes (Death, Hospitalization, Other)
  Sender: FDA-Public Use
  Company Number: BR-PFIZER INC-2015315177

PATIENT
  Age: 88 Year
  Sex: Male
  Weight: 83 kg

DRUGS (5)
  1. DETRUSITOL LA [Suspect]
     Active Substance: TOLTERODINE TARTRATE
     Indication: PROSTATIC SPECIFIC ANTIGEN INCREASED
  2. SIMVASTATIN. [Concomitant]
     Active Substance: SIMVASTATIN
     Indication: BLOOD CHOLESTEROL ABNORMAL
     Dosage: AT DINNER (FOR PRECAUTION)
     Dates: start: 2011
  3. PARACETAMOL [Concomitant]
     Active Substance: ACETAMINOPHEN
     Indication: HEADACHE
     Dosage: UNK, AS NEEDED
  4. DETRUSITOL LA [Suspect]
     Active Substance: TOLTERODINE TARTRATE
     Indication: PROSTATIC DISORDER
     Dosage: 4 MG, 1X/DAY (1 CAPSULE)
  5. HIGROTON [Concomitant]
     Active Substance: CHLORTHALIDONE
     Indication: HYPERTENSION
     Dosage: IN THE MORNING
     Dates: start: 2005

REACTIONS (13)
  - Malaise [Unknown]
  - Plasmacytoma [Unknown]
  - Decreased appetite [Unknown]
  - Anaemia [Unknown]
  - Blood pressure decreased [Unknown]
  - Perforated ulcer [Unknown]
  - Haematochezia [Unknown]
  - Chest pain [Unknown]
  - Venous occlusion [Unknown]
  - Acute myocardial infarction [Fatal]
  - Arrhythmia [Unknown]
  - Haemorrhage [Unknown]
  - Product use issue [Unknown]

NARRATIVE: CASE EVENT DATE: 2007
